FAERS Safety Report 13268353 (Version 2)
Quarter: 2017Q2

REPORT INFORMATION
  Report Type: Report from Study
  Country: DE (occurrence: DE)
  Receive Date: 20170224
  Receipt Date: 20170405
  Transmission Date: 20170830
  Serious: Yes (Hospitalization)
  Sender: FDA-Public Use
  Company Number: DE-ACTELION-A-CH2016-144544

PATIENT
  Age: 61 Year
  Sex: Male

DRUGS (15)
  1. UPTRAVI [Suspect]
     Active Substance: SELEXIPAG
     Dosage: 1000 ?G, BID
     Route: 048
     Dates: start: 20161108
  2. OPSUMIT [Concomitant]
     Active Substance: MACITENTAN
     Indication: PULMONARY ARTERIAL HYPERTENSION
     Dosage: 10 MG, QD
     Route: 048
  3. REVATIO [Concomitant]
     Active Substance: SILDENAFIL CITRATE
     Indication: PULMONARY ARTERIAL HYPERTENSION
     Dosage: UNK
     Route: 048
  4. UPTRAVI [Suspect]
     Active Substance: SELEXIPAG
     Dosage: 800 ?G, BID
     Route: 048
  5. UPTRAVI [Suspect]
     Active Substance: SELEXIPAG
     Indication: PULMONARY ARTERIAL HYPERTENSION
     Dosage: 400 ?G, UNK
     Route: 048
  6. TADALAFIL [Concomitant]
     Active Substance: TADALAFIL
     Indication: PRODUCT USED FOR UNKNOWN INDICATION
     Dosage: 40 MG, QD
  7. UPTRAVI [Suspect]
     Active Substance: SELEXIPAG
     Dosage: 1600 ?G, BID
     Route: 048
     Dates: start: 20170124
  8. UPTRAVI [Suspect]
     Active Substance: SELEXIPAG
     Dosage: 1400 ?G, BID
     Route: 048
     Dates: start: 20170324, end: 20170327
  9. CANDESARTAN. [Concomitant]
     Active Substance: CANDESARTAN
     Indication: PRODUCT USED FOR UNKNOWN INDICATION
     Dosage: 4 MG, QD
  10. LYRICA [Concomitant]
     Active Substance: PREGABALIN
     Indication: PRODUCT USED FOR UNKNOWN INDICATION
     Dosage: 75 MG, QD
  11. TORASEMID [Concomitant]
     Active Substance: TORSEMIDE
     Indication: PRODUCT USED FOR UNKNOWN INDICATION
     Dosage: 35 MG, BID
  12. SPIRONOLACTON [Concomitant]
     Active Substance: SPIRONOLACTONE
     Indication: PRODUCT USED FOR UNKNOWN INDICATION
     Dosage: 25 MG, QD
  13. UPTRAVI [Suspect]
     Active Substance: SELEXIPAG
     Dosage: 200 ?G, UNK
     Route: 048
     Dates: start: 2016
  14. UPTRAVI [Suspect]
     Active Substance: SELEXIPAG
     Dosage: 1200 ?G, BID
     Route: 048
     Dates: start: 20161124
  15. UPTRAVI [Suspect]
     Active Substance: SELEXIPAG
     Dosage: 1200 ?G, BID
     Route: 048
     Dates: start: 20170327

REACTIONS (7)
  - Hypoaesthesia oral [Unknown]
  - Pneumonia [Recovering/Resolving]
  - Flushing [Unknown]
  - Arthralgia [Unknown]
  - Rash [Unknown]
  - Diarrhoea [Recovering/Resolving]
  - Myalgia [Unknown]

NARRATIVE: CASE EVENT DATE: 20161022
